FAERS Safety Report 4487600-8 (Version None)
Quarter: 2004Q4

REPORT INFORMATION
  Report Type: 
  Country: None (occurrence: None)
  Receive Date: 20041027
  Receipt Date: 20041027
  Transmission Date: 20050328
  Serious: Yes (Other)
  Sender: FDA-Public Use
  Company Number: None

PATIENT
  Age: 21 Year
  Sex: Male

DRUGS (1)
  1. CONVATEC CLEANSING FOAM [Suspect]
     Indication: BEDRIDDEN
     Dosage: SPRAYED ON SKIN X 2 FOR DAILY CLEANING

REACTIONS (2)
  - APPLICATION SITE DERMATITIS [None]
  - RASH ERYTHEMATOUS [None]
